FAERS Safety Report 21923999 (Version 1)
Quarter: 2023Q1

REPORT INFORMATION
  Report Type: Other
  Country: SA (occurrence: SA)
  Receive Date: 20230130
  Receipt Date: 20230130
  Transmission Date: 20230417
  Serious: Yes (Other)
  Sender: FDA-Public Use
  Company Number: SA-ALVOGEN-2023089051

PATIENT
  Age: 23 Year
  Sex: Male

DRUGS (2)
  1. METHOTREXATE [Suspect]
     Active Substance: METHOTREXATE
     Indication: Granuloma skin
  2. FOLIC ACID [Concomitant]
     Active Substance: FOLIC ACID
     Indication: Granuloma skin

REACTIONS (3)
  - Epidermodysplasia verruciformis [Recovered/Resolved]
  - Immunosuppression [Unknown]
  - Off label use [Unknown]
